FAERS Safety Report 6498328-7 (Version None)
Quarter: 2009Q4

REPORT INFORMATION
  Report Type: 
  Country: None (occurrence: None)
  Receive Date: 20091215
  Receipt Date: 20091205
  Transmission Date: 20100525
  Serious: Yes (Hospitalization)
  Sender: FDA-Public Use
  Company Number: US-PFIZER INC-2009286588

PATIENT

DRUGS (2)
  1. TIKOSYN [Suspect]
  2. DRONEDARONE [Suspect]

REACTIONS (1)
  - FEELING ABNORMAL [None]
